FAERS Safety Report 14196145 (Version 1)
Quarter: 2017Q4

REPORT INFORMATION
  Report Type: Spontaneous
  Country: US (occurrence: None)
  Receive Date: 20171116
  Receipt Date: 20171116
  Transmission Date: 20180321
  Serious: Yes (Disabling)
  Sender: FDA-Public Use
  Company Number: None

PATIENT
  Age: 76 Year
  Sex: Female
  Weight: 53.52 kg

DRUGS (11)
  1. GLUCOSAMINE [Concomitant]
     Active Substance: GLUCOSAMINE
  2. HYDROCLORITHIAZIDE [Concomitant]
  3. D [Concomitant]
  4. ZICAM (HOMEOPATHICS) [Suspect]
     Active Substance: HOMEOPATHICS
     Indication: NASAL CONGESTION
     Route: 055
     Dates: start: 201703, end: 201703
  5. VITAMIN C [Concomitant]
     Active Substance: ASCORBIC ACID
  6. CALCIUM [Concomitant]
     Active Substance: CALCIUM
  7. ROSUVASTATIN. [Concomitant]
     Active Substance: ROSUVASTATIN
  8. LOSARTIN [Concomitant]
     Active Substance: LOSARTAN
  9. E [Concomitant]
  10. COQ10 [Concomitant]
     Active Substance: UBIDECARENONE
  11. LUTEIN [Concomitant]
     Active Substance: LUTEIN

REACTIONS (3)
  - Ageusia [None]
  - Anosmia [None]
  - Rhinalgia [None]

NARRATIVE: CASE EVENT DATE: 201703
